FAERS Safety Report 14639123 (Version 2)
Quarter: 2018Q1

REPORT INFORMATION
  Report Type: Spontaneous
  Country: GB (occurrence: GB)
  Receive Date: 20180315
  Receipt Date: 20180320
  Transmission Date: 20180509
  Serious: Yes (Other)
  Sender: FDA-Public Use
  Company Number: GB-ABBVIE-18S-167-2288683-00

PATIENT
  Age: 75 Year
  Sex: Male
  Weight: 70.76 kg

DRUGS (1)
  1. PROSTAP 3 [Suspect]
     Active Substance: LEUPROLIDE ACETATE
     Indication: MALIGNANT NEOPLASM PROGRESSION
     Dosage: UNK UNK, Q3MONTHS
     Route: 051
     Dates: start: 20171208

REACTIONS (2)
  - Bone pain [Not Recovered/Not Resolved]
  - Injection site pain [Not Recovered/Not Resolved]

NARRATIVE: CASE EVENT DATE: 20171208
